FAERS Safety Report 10363204 (Version 1)
Quarter: 2014Q1

REPORT INFORMATION
  Report Type: Spontaneous
  Country: US (occurrence: None)
  Receive Date: 20140306
  Receipt Date: 20140306
  Transmission Date: 20141002
  Serious: Yes (Other)
  Sender: FDA-Public Use
  Company Number: 163-21880-13061666

PATIENT
  Age: 58 Year
  Sex: Male
  Weight: 90.72 kg

DRUGS (8)
  1. REVLIMID [Suspect]
     Indication: PLASMA CELL MYELOMA
     Dosage: 21 IN 28 D?TEMPORARILY INTERRUPTED
     Route: 048
     Dates: start: 20130401
  2. VITAMINS [Concomitant]
  3. FAMCICLOVIR [Concomitant]
  4. ATORVASTATIN [Concomitant]
  5. ASPIRIN (ACETYLSALICYLIC ACID) [Concomitant]
  6. ZOLPIDEM [Concomitant]
  7. ESCITALOPRAM [Concomitant]
  8. HYDROCODONE/APAP (VICODIN) [Concomitant]

REACTIONS (3)
  - Platelet count decreased [None]
  - Neutrophil count decreased [None]
  - White blood cell count decreased [None]
